FAERS Safety Report 6553557-9 (Version None)
Quarter: 2010Q1

REPORT INFORMATION
  Report Type: 
  Country: None (occurrence: None)
  Receive Date: 20100127
  Receipt Date: 20100114
  Transmission Date: 20100710
  Serious: Yes (Death)
  Sender: FDA-Public Use
  Company Number: TW-ROCHE-681338

PATIENT
  Age: 77 Year
  Sex: Male

DRUGS (1)
  1. TRETINOIN [Suspect]
     Route: 065

REACTIONS (2)
  - ACUTE RESPIRATORY DISTRESS SYNDROME [None]
  - RETINOIC ACID SYNDROME [None]
